FAERS Safety Report 25813076 (Version 1)
Quarter: 2025Q3

REPORT INFORMATION
  Report Type: Spontaneous
  Country: US (occurrence: US)
  Receive Date: 20250917
  Receipt Date: 20250917
  Transmission Date: 20251021
  Serious: No
  Sender: FERRING
  Company Number: US-FERRINGPH-2025FE03798

PATIENT
  Sex: Male

DRUGS (1)
  1. REBYOTA [Suspect]
     Active Substance: DONOR HUMAN STOOL
     Indication: Product used for unknown indication
     Route: 065
     Dates: start: 20250711, end: 20250711

REACTIONS (1)
  - Pain [Unknown]
